FAERS Safety Report 9229458 (Version 1)
Quarter: 2013Q2

REPORT INFORMATION
  Report Type: Spontaneous
  Country: US (occurrence: US)
  Receive Date: 20130412
  Receipt Date: 20130412
  Transmission Date: 20140414
  Serious: Yes (Other)
  Sender: FDA-Public Use
  Company Number: US-ASTELLAS-2013US000946

PATIENT
  Sex: Male
  Weight: 88 kg

DRUGS (2)
  1. PROGRAF [Suspect]
     Indication: RENAL TRANSPLANT
     Dosage: 0.5 MG, UID/QD
     Route: 048
     Dates: start: 20080628
  2. PROGRAF [Suspect]
     Dosage: 2 MG, BID
     Route: 048
     Dates: start: 20080628

REACTIONS (4)
  - Drug ineffective [Unknown]
  - Cerebrovascular accident [Recovered/Resolved]
  - Kidney transplant rejection [Not Recovered/Not Resolved]
  - Weight decreased [Unknown]
